FAERS Safety Report 4644752-4 (Version None)
Quarter: 2005Q2

REPORT INFORMATION
  Report Type: 
  Country: None (occurrence: None)
  Receive Date: 20050426
  Receipt Date: 20050414
  Transmission Date: 20051028
  Serious: Yes (Hospitalization)
  Sender: FDA-Public Use
  Company Number: 200511350FR

PATIENT
  Age: 73 Year
  Sex: Female

DRUGS (9)
  1. TERALITHE [Suspect]
     Indication: BIPOLAR I DISORDER
     Route: 048
     Dates: end: 20050107
  2. AMARYL [Suspect]
     Indication: DIABETES MELLITUS
     Route: 048
  3. FLUOROURACIL [Suspect]
     Dates: end: 20041208
  4. LEVOTHYROX [Suspect]
     Indication: HYPOTHYROIDISM
     Route: 048
  5. MOPRAL [Suspect]
     Route: 048
  6. DIFFU K [Suspect]
     Route: 048
     Dates: end: 20050107
  7. FORLAX [Concomitant]
     Route: 048
  8. SPASFON [Concomitant]
  9. TARDYFERON [Concomitant]
     Route: 048

REACTIONS (14)
  - AGITATION [None]
  - ASTHENIA [None]
  - BLOOD CREATININE DECREASED [None]
  - CONFUSIONAL STATE [None]
  - DEPRESSED LEVEL OF CONSCIOUSNESS [None]
  - DISORIENTATION [None]
  - EXTRAPYRAMIDAL DISORDER [None]
  - FALL [None]
  - GENERAL PHYSICAL HEALTH DETERIORATION [None]
  - HAEMOGLOBIN DECREASED [None]
  - MUSCLE RIGIDITY [None]
  - SOMNOLENCE [None]
  - TREMOR [None]
  - VOMITING [None]
